FAERS Safety Report 8742436 (Version 2)
Quarter: 2012Q4

REPORT INFORMATION
  Report Type: 
  Country: US (occurrence: US)
  Receive Date: 20120824
  Receipt Date: 20120906
  Transmission Date: 20130627
  Serious: Yes (Hospitalization)
  Sender: FDA-Public Use
  Company Number: US-BRISTOL-MYERS SQUIBB COMPANY-16854127

PATIENT
  Age: 51 Year
  Sex: Female
  Weight: 53 kg

DRUGS (10)
  1. ABATACEPT SUBQ INJECTION 125MG/ML [Suspect]
     Indication: RHEUMATOID ARTHRITIS
     Dosage: next injection on 13AUG2012
16Jan12
     Route: 058
     Dates: start: 201112
  2. METHOTREXATE [Suspect]
  3. PREDNISONE [Suspect]
     Dosage: tapered down to 40 mg, 30 mg, 20 mg and to 10 mg. stayed on 10 mg for a couple of months and 5 mg
  4. VIACTIV [Concomitant]
  5. NORCO [Concomitant]
  6. ATIVAN [Concomitant]
  7. VITAMIN D3 [Concomitant]
  8. FOSAMAX [Concomitant]
  9. FOLIC ACID [Concomitant]
  10. AMBIEN [Concomitant]

REACTIONS (8)
  - Rib fracture [Unknown]
  - Pneumonia [Unknown]
  - Thoracic vertebral fracture [Unknown]
  - Inflammation [Unknown]
  - Joint dislocation [Unknown]
  - Vomiting [Unknown]
  - Pain [Unknown]
  - Urine odour abnormal [Unknown]
